FAERS Safety Report 18134559 (Version 1)
Quarter: 2020Q3

REPORT INFORMATION
  Report Type: Spontaneous
  Country: US (occurrence: US)
  Receive Date: 20200810
  Receipt Date: 20200810
  Transmission Date: 20201103
  Serious: No
  Sender: FDA-Public Use
  Company Number: None

PATIENT
  Sex: Male

DRUGS (2)
  1. PREZCOBIX [Suspect]
     Active Substance: COBICISTAT\DARUNAVIR ETHANOLATE
     Indication: HIV INFECTION
     Dosage: ?          OTHER DOSE:800/150MG;?
     Route: 048
     Dates: start: 202002
  2. TAMSULOSIN HCL++ [Suspect]
     Active Substance: TAMSULOSIN HYDROCHLORIDE
     Indication: HIV INFECTION
     Route: 048
     Dates: start: 202005

REACTIONS (2)
  - Night sweats [None]
  - Confusional state [None]
